FAERS Safety Report 15954071 (Version 1)
Quarter: 2019Q1

REPORT INFORMATION
  Report Type: Spontaneous
  Country: CN (occurrence: CN)
  Receive Date: 20190212
  Receipt Date: 20190212
  Transmission Date: 20190417
  Serious: Yes (Hospitalization)
  Sender: FDA-Public Use
  Company Number: CN-ELI_LILLY_AND_COMPANY-CN201902000259

PATIENT
  Sex: Male
  Weight: 71 kg

DRUGS (4)
  1. SODIUM CHLORIDE IV [Suspect]
     Active Substance: SODIUM CHLORIDE
     Indication: LUNG NEOPLASM MALIGNANT
     Dosage: 500 ML, DAILY
     Route: 042
     Dates: start: 20181109, end: 20181110
  2. GEMZAR [Suspect]
     Active Substance: GEMCITABINE HYDROCHLORIDE
     Indication: LUNG NEOPLASM MALIGNANT
     Dosage: 160 MG, WEEKLY (1/W)
     Route: 042
     Dates: start: 20181109, end: 20181116
  3. CISPLATIN. [Suspect]
     Active Substance: CISPLATIN
     Indication: LUNG NEOPLASM MALIGNANT
     Dosage: 60 MG, DAILY
     Route: 042
     Dates: start: 20181109, end: 20181110
  4. SODIUM CHLORIDE IV [Suspect]
     Active Substance: SODIUM CHLORIDE
     Dosage: 100 ML, DAILY
     Route: 042
     Dates: start: 20181109, end: 20181116

REACTIONS (2)
  - Neutropenia [Recovering/Resolving]
  - Leukocytosis [Recovering/Resolving]
